FAERS Safety Report 8310403-0 (Version None)
Quarter: 2012Q2

REPORT INFORMATION
  Report Type: 
  Country: None (occurrence: None)
  Receive Date: 20120425
  Receipt Date: 20120417
  Transmission Date: 20120825
  Serious: Yes (Other)
  Sender: FDA-Public Use
  Company Number: US-JNJFOC-20120314585

PATIENT
  Sex: Female

DRUGS (11)
  1. STELARA [Suspect]
     Dosage: CYCLE 1
     Route: 058
     Dates: start: 20091223, end: 20091223
  2. STELARA [Suspect]
     Dosage: CYCLE 5
     Route: 058
     Dates: start: 20101120, end: 20101120
  3. STELARA [Suspect]
     Dosage: CYCLE 7
     Route: 058
     Dates: start: 20110516, end: 20110516
  4. STELARA [Suspect]
     Dosage: CYCLE 9
     Route: 058
     Dates: start: 20111214, end: 20111214
  5. STELARA [Suspect]
     Dosage: CYCLE 2
     Route: 058
     Dates: start: 20100128, end: 20100128
  6. CRESTOR [Concomitant]
     Route: 065
     Dates: start: 20110101
  7. PENTASPAN [Concomitant]
     Route: 065
     Dates: start: 20110101
  8. STELARA [Suspect]
     Indication: PSORIASIS
     Dosage: CYCLE 3
     Route: 058
     Dates: start: 20100519, end: 20100519
  9. STELARA [Suspect]
     Dosage: CYCLE 6
     Route: 058
     Dates: start: 20110211, end: 20110211
  10. STELARA [Suspect]
     Dosage: CYCLE 4
     Route: 058
     Dates: start: 20100805, end: 20100805
  11. STELARA [Suspect]
     Dosage: CYCLE 8
     Route: 058
     Dates: start: 20110902, end: 20110902

REACTIONS (1)
  - BLOOD CHOLESTEROL INCREASED [None]
